FAERS Safety Report 13363331 (Version 1)
Quarter: 2017Q1

REPORT INFORMATION
  Report Type: Other
  Country: US (occurrence: US)
  Receive Date: 20170323
  Receipt Date: 20170323
  Transmission Date: 20170429
  Serious: Yes (Other)
  Sender: FDA-Public Use
  Company Number: US-SHIRE-US201705680

PATIENT
  Sex: Female
  Weight: 68.27 kg

DRUGS (1)
  1. XIIDRA [Suspect]
     Active Substance: LIFITEGRAST
     Indication: DRY EYE
     Dosage: 1 GTT, 2X/DAY:BID
     Route: 047
     Dates: start: 20170224, end: 20170311

REACTIONS (4)
  - Conjunctival haemorrhage [Recovered/Resolved]
  - Dysgeusia [Recovered/Resolved]
  - Blepharitis [Recovering/Resolving]
  - Instillation site irritation [Recovered/Resolved]

NARRATIVE: CASE EVENT DATE: 2017
